FAERS Safety Report 16466771 (Version 1)
Quarter: 2019Q2

REPORT INFORMATION
  Report Type: Spontaneous
  Country: LB (occurrence: LB)
  Receive Date: 20190623
  Receipt Date: 20190623
  Transmission Date: 20190711
  Serious: Yes (Hospitalization)
  Sender: FDA-Public Use
  Company Number: LB-BRISTOL-MYERS SQUIBB COMPANY-BMS-2019-058640

PATIENT
  Age: 79 Year
  Sex: Female

DRUGS (1)
  1. SPRYCEL [Suspect]
     Active Substance: DASATINIB
     Indication: CHRONIC MYELOID LEUKAEMIA
     Dosage: 50 MILLIGRAM, QD
     Route: 065

REACTIONS (2)
  - Lethargy [Recovering/Resolving]
  - Influenza [Recovering/Resolving]
